FAERS Safety Report 15847920 (Version 1)
Quarter: 2019Q1

REPORT INFORMATION
  Report Type: Spontaneous
  Country: US (occurrence: US)
  Receive Date: 20190121
  Receipt Date: 20190121
  Transmission Date: 20190417
  Serious: Yes (Other)
  Sender: FDA-Public Use
  Company Number: US-ALKEM LABORATORIES LIMITED-US-ALKEM-2018-06637

PATIENT

DRUGS (1)
  1. METHADONE HYDROCHLORIDE. [Suspect]
     Active Substance: METHADONE HYDROCHLORIDE
     Indication: PRODUCT SUBSTITUTION
     Dosage: 700 MG, QD
     Route: 065

REACTIONS (2)
  - Torsade de pointes [Unknown]
  - Electrocardiogram QT prolonged [Unknown]
